FAERS Safety Report 21062080 (Version 2)
Quarter: 2023Q4

REPORT INFORMATION
  Report Type: Spontaneous
  Country: US (occurrence: US)
  Receive Date: 20220710
  Receipt Date: 20231024
  Transmission Date: 20240110
  Serious: No
  Sender: FDA-Public Use
  Company Number: US-SA-SAC20220707000381

PATIENT
  Age: 70 Year
  Sex: Male

DRUGS (1)
  1. DUPIXENT [Suspect]
     Active Substance: DUPILUMAB
     Indication: Dermatitis allergic
     Dosage: 300 MG, QOW
     Route: 058
     Dates: start: 20220518

REACTIONS (4)
  - Rash [Recovered/Resolved]
  - Stress [Unknown]
  - Therapeutic product effect incomplete [Unknown]
  - Eczema [Unknown]

NARRATIVE: CASE EVENT DATE: 20220101
